FAERS Safety Report 7357367-4 (Version None)
Quarter: 2011Q1

REPORT INFORMATION
  Report Type: 
  Country: None (occurrence: None)
  Receive Date: 20110311
  Receipt Date: 20110311
  Transmission Date: 20110831
  Serious: No
  Sender: FDA-Public Use
  Company Number: None

PATIENT
  Age: 82 Year
  Sex: Male
  Weight: 94 kg

DRUGS (2)
  1. WARFARIN SODIUM [Suspect]
     Indication: ATRIAL FIBRILLATION
     Dosage: 3.92 MG EVERY DAY PO
     Route: 048
     Dates: start: 19970122
  2. BUMETANIDE [Suspect]
     Indication: CARDIAC FAILURE CONGESTIVE
     Dosage: 2 MG BID PO
     Route: 048
     Dates: start: 20030722

REACTIONS (3)
  - WEIGHT INCREASED [None]
  - BLOOD CREATININE INCREASED [None]
  - INTERNATIONAL NORMALISED RATIO INCREASED [None]
